FAERS Safety Report 5693443-X (Version None)
Quarter: 2008Q2

REPORT INFORMATION
  Report Type: 
  Country: None (occurrence: None)
  Receive Date: 20080401
  Receipt Date: 20080401
  Transmission Date: 20081010
  Serious: Yes (Hospitalization)
  Sender: FDA-Public Use
  Company Number: None

PATIENT
  Age: 58 Year
  Sex: Male
  Weight: 92.2 kg

DRUGS (1)
  1. LARIAM [Suspect]
     Indication: MALARIA PROPHYLAXIS
     Dosage: 250 MG ONCE WEEKLY ORAL
     Route: 048
     Dates: start: 20080130, end: 20080228

REACTIONS (10)
  - AGITATION [None]
  - ALTERED STATE OF CONSCIOUSNESS [None]
  - ANXIETY [None]
  - CHEST PAIN [None]
  - CLAUSTROPHOBIA [None]
  - CONFUSIONAL STATE [None]
  - DELUSION [None]
  - FEELING ABNORMAL [None]
  - FLIGHT OF IDEAS [None]
  - PSYCHOTIC DISORDER [None]
